FAERS Safety Report 4730278-6 (Version None)
Quarter: 2005Q3

REPORT INFORMATION
  Report Type: 
  Country: None (occurrence: None)
  Receive Date: 20050728
  Receipt Date: 20050718
  Transmission Date: 20060218
  Serious: Yes (Other)
  Sender: FDA-Public Use
  Company Number: HQWYE256919JUL05

PATIENT
  Sex: Male

DRUGS (1)
  1. CORDARONE [Suspect]
     Indication: ATRIAL FLUTTER
     Dosage: 200 MG TABLET  ORAL
     Route: 048
     Dates: start: 20030801, end: 20050201

REACTIONS (3)
  - DIFFICULTY IN WALKING [None]
  - HYPERTHYROIDISM [None]
  - PAIN IN EXTREMITY [None]
